FAERS Safety Report 11930714 (Version 1)
Quarter: 2016Q1

REPORT INFORMATION
  Report Type: Spontaneous
  Country: US (occurrence: US)
  Receive Date: 20160120
  Receipt Date: 20160120
  Transmission Date: 20160526
  Serious: No
  Sender: FDA-Public Use
  Company Number: US-INCYTE CORPORATION-2015IN003896

PATIENT
  Sex: Female

DRUGS (4)
  1. JAKAFI [Suspect]
     Active Substance: RUXOLITINIB
     Indication: MYELOFIBROSIS
     Dosage: 10 MG, AM
     Route: 048
     Dates: start: 201309
  2. TRAMADOL. [Concomitant]
     Active Substance: TRAMADOL
     Indication: MYELOFIBROSIS
     Dosage: UNK
  3. ALLOPURINOL. [Concomitant]
     Active Substance: ALLOPURINOL
     Dosage: UNK
  4. JAKAFI [Suspect]
     Active Substance: RUXOLITINIB
     Dosage: 15 MG, HS
     Route: 048
     Dates: start: 201309

REACTIONS (2)
  - Fall [Unknown]
  - Clavicle fracture [Unknown]
